FAERS Safety Report 23423372 (Version 1)
Quarter: 2024Q1

REPORT INFORMATION
  Report Type: Spontaneous
  Country: IL (occurrence: None)
  Receive Date: 20240119
  Receipt Date: 20240119
  Transmission Date: 20240410
  Serious: Yes (Disabling)
  Sender: FDA-Public Use
  Company Number: None

PATIENT
  Age: 22 Year
  Sex: Male
  Weight: 75 kg

DRUGS (3)
  1. FINASTERIDE [Suspect]
     Active Substance: FINASTERIDE
     Dates: start: 20231016, end: 20231020
  2. VITAMIN D [Concomitant]
     Active Substance: VITAMIN D NOS
  3. MAGNESIUM [Concomitant]
     Active Substance: MAGNESIUM

REACTIONS (10)
  - Loss of libido [None]
  - Brain fog [None]
  - Amnesia [None]
  - Cognitive disorder [None]
  - Depression [None]
  - Insomnia [None]
  - Fatigue [None]
  - Alopecia [None]
  - Testicular atrophy [None]
  - Semen volume decreased [None]

NARRATIVE: CASE EVENT DATE: 20231020
